FAERS Safety Report 8356922-2 (Version None)
Quarter: 2012Q2

REPORT INFORMATION
  Report Type: 
  Country: None (occurrence: None)
  Receive Date: 20120514
  Receipt Date: 20090915
  Transmission Date: 20120825
  Serious: No
  Sender: FDA-Public Use
  Company Number: US-TEVA-2009010406

PATIENT
  Age: 61 Year
  Sex: Male
  Weight: 80.358 kg

DRUGS (1)
  1. TREANDA [Suspect]
     Route: 042

REACTIONS (1)
  - NEUTROPENIA [None]
